FAERS Safety Report 7888237-0 (Version None)
Quarter: 2011Q4

REPORT INFORMATION
  Report Type: 
  Country: None (occurrence: None)
  Receive Date: 20111103
  Receipt Date: 20111019
  Transmission Date: 20120403
  Serious: Yes (Hospitalization)
  Sender: FDA-Public Use
  Company Number: KR-SANOFI-AVENTIS-2011SA070178

PATIENT
  Age: 67 Year
  Sex: Female

DRUGS (6)
  1. LOCAL ANESTHETIC [Concomitant]
     Indication: SURGERY
  2. PREDNISOLONE [Concomitant]
     Indication: RHEUMATOID ARTHRITIS
     Route: 048
  3. HYDROXYCHLOROQUINE SULFATE [Concomitant]
     Indication: RHEUMATOID ARTHRITIS
  4. LEFLUNOMIDE [Suspect]
     Indication: RHEUMATOID ARTHRITIS
     Route: 065
  5. METHOTREXATE [Concomitant]
     Indication: RHEUMATOID ARTHRITIS
  6. SULFASALAZINE [Concomitant]
     Indication: RHEUMATOID ARTHRITIS

REACTIONS (8)
  - TENDERNESS [None]
  - C-REACTIVE PROTEIN INCREASED [None]
  - OEDEMA PERIPHERAL [None]
  - PAIN [None]
  - RHEUMATOID FACTOR INCREASED [None]
  - RHEUMATOID NODULE [None]
  - CONDITION AGGRAVATED [None]
  - RED BLOOD CELL SEDIMENTATION RATE INCREASED [None]
